FAERS Safety Report 7447892-X (Version None)
Quarter: 2011Q2

REPORT INFORMATION
  Report Type: 
  Country: None (occurrence: None)
  Receive Date: 20110429
  Receipt Date: 20110207
  Transmission Date: 20111010
  Serious: No
  Sender: FDA-Public Use
  Company Number: US-ASTRAZENECA-2010SE09397

PATIENT
  Age: 62 Year
  Sex: Female

DRUGS (1)
  1. NEXIUM [Suspect]
     Route: 048

REACTIONS (6)
  - ABDOMINAL DISCOMFORT [None]
  - HEART RATE INCREASED [None]
  - BEDRIDDEN [None]
  - ARTERIAL OCCLUSIVE DISEASE [None]
  - HYPERTENSION [None]
  - TEMPORAL ARTERITIS [None]
